FAERS Safety Report 7087013-9 (Version None)
Quarter: 2010Q4

REPORT INFORMATION
  Report Type: 
  Country: None (occurrence: None)
  Receive Date: 20101106
  Receipt Date: 20101019
  Transmission Date: 20110411
  Serious: No
  Sender: FDA-Public Use
  Company Number: US-WYE-H18271910

PATIENT
  Sex: Female
  Weight: 78.54 kg

DRUGS (6)
  1. PREMARIN [Suspect]
     Indication: HOT FLUSH
     Route: 067
     Dates: start: 20100301, end: 20100301
  2. PREMARIN [Suspect]
     Route: 067
     Dates: start: 20100101
  3. PREMARIN [Suspect]
     Route: 067
     Dates: start: 20100101, end: 20101019
  4. PETHIDINE HYDROCHLORIDE [Concomitant]
  5. ATIVAN [Concomitant]
  6. ACYCLOVIR [Concomitant]

REACTIONS (2)
  - APPLICATION SITE IRRITATION [None]
  - APPLICATION SITE PAIN [None]
